FAERS Safety Report 14719814 (Version 5)
Quarter: 2018Q3

REPORT INFORMATION
  Report Type: Report from Study
  Country: FR (occurrence: FR)
  Receive Date: 20180405
  Receipt Date: 20180724
  Transmission Date: 20181010
  Serious: Yes (Hospitalization)
  Sender: FDA-Public Use
  Company Number: FR-ROCHE-2095853

PATIENT
  Age: 58 Year
  Sex: Male

DRUGS (10)
  1. OBINUTUZUMAB. [Suspect]
     Active Substance: OBINUTUZUMAB
     Dosage: C1 D15
     Route: 041
     Dates: start: 20180122
  2. IDELALISIB [Suspect]
     Active Substance: IDELALISIB
     Route: 048
     Dates: start: 20180326
  3. LERCANIDIPINE [Concomitant]
     Active Substance: LERCANIDIPINE
     Indication: HYPERTENSION
     Route: 048
  4. OBINUTUZUMAB. [Suspect]
     Active Substance: OBINUTUZUMAB
     Dosage: C3D1
     Route: 041
     Dates: start: 20180326
  5. SULFAMETHOXAZOLE/TRIMETHOPRIM [Suspect]
     Active Substance: SULFAMETHOXAZOLE\TRIMETHOPRIM
     Indication: INFECTION PROPHYLAXIS
     Route: 048
     Dates: start: 20180108, end: 20180305
  6. OBINUTUZUMAB. [Suspect]
     Active Substance: OBINUTUZUMAB
     Indication: WALDENSTROM^S MACROGLOBULINAEMIA
     Dosage: C1D1: 08/JAN/2018, C2D1: 05/FEB/2018
     Route: 041
     Dates: start: 20180108
  7. OBINUTUZUMAB. [Suspect]
     Active Substance: OBINUTUZUMAB
     Dosage: C2, D1
     Route: 041
     Dates: start: 20180205
  8. IDELALISIB [Suspect]
     Active Substance: IDELALISIB
     Indication: WALDENSTROM^S MACROGLOBULINAEMIA
     Dosage: CYCLE 1, DAY 3
     Route: 048
     Dates: start: 20180108, end: 20180305
  9. CANDESARTAN. [Concomitant]
     Active Substance: CANDESARTAN
     Indication: HYPERTENSION
     Route: 048
  10. ZELITREX [Concomitant]
     Active Substance: VALACYCLOVIR HYDROCHLORIDE
     Indication: ANTIVIRAL PROPHYLAXIS
     Route: 048
     Dates: start: 20161103

REACTIONS (1)
  - Hepatocellular injury [Recovering/Resolving]

NARRATIVE: CASE EVENT DATE: 20180305
